FAERS Safety Report 10009757 (Version 2)
Quarter: 2014Q1

REPORT INFORMATION
  Report Type: Spontaneous
  Country: US (occurrence: US)
  Receive Date: 20140312
  Receipt Date: 20140312
  Transmission Date: 20141002
  Serious: Yes (Other)
  Sender: FDA-Public Use
  Company Number: US-INCYTE CORPORATION-2012IN002633

PATIENT
  Age: 90 Year
  Sex: Female

DRUGS (7)
  1. JAKAFI [Suspect]
     Indication: MYELOFIBROSIS
     Dosage: 5 MG, BID
     Route: 048
     Dates: start: 20121116, end: 201212
  2. JAKAFI [Suspect]
     Dosage: 20 MG, BID
     Route: 048
     Dates: start: 201212
  3. JAKAFI [Suspect]
     Dosage: 10 MG, BID
     Route: 048
     Dates: end: 20130205
  4. AGRYLIN [Concomitant]
  5. HYDREA [Concomitant]
  6. SYNTHROID [Concomitant]
  7. ASPIRIN [Concomitant]
     Dosage: 81 MG, UNK

REACTIONS (7)
  - Platelet count decreased [Not Recovered/Not Resolved]
  - Blood pressure increased [Unknown]
  - Palpitations [Unknown]
  - Feeling abnormal [Not Recovered/Not Resolved]
  - Contusion [Unknown]
  - Red blood cell count decreased [Unknown]
  - Haemoglobin decreased [Unknown]
